FAERS Safety Report 9460138 (Version 1)
Quarter: 2013Q3

REPORT INFORMATION
  Report Type: Spontaneous
  Country: CO (occurrence: CO)
  Receive Date: 20130815
  Receipt Date: 20130815
  Transmission Date: 20140515
  Serious: Yes (Other)
  Sender: FDA-Public Use
  Company Number: CO-BAXTER-2013BAX032035

PATIENT
  Age: 31 Year
  Sex: Female

DRUGS (2)
  1. CLORURO DE SODIO 0.9% [Suspect]
     Indication: PRODUCT USED FOR UNKNOWN INDICATION
     Route: 042
     Dates: start: 20130808, end: 20130808
  2. SODIUM CHLORIDE [Suspect]
     Indication: PRODUCT USED FOR UNKNOWN INDICATION
     Dosage: 2 MEQ/ML
     Route: 042
     Dates: start: 20130808, end: 20130808

REACTIONS (2)
  - Intracranial hypotension [Unknown]
  - Blood pressure decreased [Unknown]
